FAERS Safety Report 25940692 (Version 1)
Quarter: 2025Q4

REPORT INFORMATION
  Report Type: Spontaneous
  Country: US (occurrence: US)
  Receive Date: 20251020
  Receipt Date: 20251020
  Transmission Date: 20260118
  Serious: Yes (Death)
  Sender: Phathom Pharmaceuticals
  Company Number: US-PHATHOM PHARMACEUTICALS INC.-2025PHT02973

PATIENT
  Age: 82 Year
  Sex: Male

DRUGS (19)
  1. VOQUEZNA [Suspect]
     Active Substance: VONOPRAZAN FUMARATE
     Dosage: 20 MG, 1X/DAY
     Route: 048
     Dates: start: 20250709, end: 20250928
  2. LIPITOR [Concomitant]
     Active Substance: ATORVASTATIN CALCIUM
  3. MINERALS\VITAMINS [Concomitant]
     Active Substance: MINERALS\VITAMINS
  4. CALCIUM\VITAMIN D [Concomitant]
     Active Substance: CALCIUM\VITAMIN D
  5. LISINOPRIL [Concomitant]
     Active Substance: LISINOPRIL
  6. TROSPIUM CHLORIDE [Concomitant]
     Active Substance: TROSPIUM CHLORIDE
  7. CITALOPRAM [Concomitant]
     Active Substance: CITALOPRAM
  8. ATENOLOL [Concomitant]
     Active Substance: ATENOLOL
  9. SENOKOT [Concomitant]
     Active Substance: SENNOSIDES
  10. IRON [Concomitant]
     Active Substance: IRON
  11. VITAMIN C [Concomitant]
     Active Substance: ASCORBIC ACID
  12. MELATONIN [Concomitant]
     Active Substance: MELATONIN
  13. TYLENOL [Concomitant]
     Active Substance: ACETAMINOPHEN
  14. CARAFATE [Concomitant]
     Active Substance: SUCRALFATE
  15. PEPCID [Concomitant]
     Active Substance: FAMOTIDINE
  16. ASPIRIN [Concomitant]
     Active Substance: ASPIRIN
  17. ZOVIRAX [Concomitant]
     Active Substance: ACYCLOVIR
  18. DIFLUCAN [Concomitant]
     Active Substance: FLUCONAZOLE
  19. COLACE [Concomitant]
     Active Substance: DOCUSATE SODIUM

REACTIONS (1)
  - Death [Fatal]

NARRATIVE: CASE EVENT DATE: 20250101
